FAERS Safety Report 5726018-4 (Version None)
Quarter: 2008Q2

REPORT INFORMATION
  Report Type: 
  Country: None (occurrence: None)
  Receive Date: 20080502
  Receipt Date: 20080424
  Transmission Date: 20081010
  Serious: Yes (Other)
  Sender: FDA-Public Use
  Company Number: PHBS2007JP19243

PATIENT
  Age: 70 Year
  Sex: Female

DRUGS (1)
  1. LOCHOL [Suspect]
     Route: 048

REACTIONS (2)
  - HAEMORRHAGE [None]
  - VAGINAL EROSION [None]
